FAERS Safety Report 19609518 (Version 1)
Quarter: 2021Q3

REPORT INFORMATION
  Report Type: Spontaneous
  Country: CA (occurrence: CA)
  Receive Date: 20210726
  Receipt Date: 20210726
  Transmission Date: 20211014
  Serious: Yes (Other)
  Sender: FDA-Public Use
  Company Number: CA-ACCORD-232854

PATIENT
  Age: 39 Year
  Sex: Female

DRUGS (10)
  1. RISEDRONIC ACID [Concomitant]
     Active Substance: RISEDRONIC ACID
  2. RIFAMPICIN [Concomitant]
     Active Substance: RIFAMPIN
  3. METHOTREXATE. [Suspect]
     Active Substance: METHOTREXATE
     Indication: PRODUCT USED FOR UNKNOWN INDICATION
     Route: 058
  4. PREDNISONE. [Concomitant]
     Active Substance: PREDNISONE
  5. CALCIUM CARBONATE/COLECALCIFEROL [Concomitant]
     Active Substance: CALCIUM CARBONATE\CHOLECALCIFEROL
  6. HYDROXYCHLOROQUINE [Concomitant]
     Active Substance: HYDROXYCHLOROQUINE
     Dosage: EVERY 1 DAYS
     Route: 048
  7. ORENCIA [Concomitant]
     Active Substance: ABATACEPT
     Route: 058
  8. HYDROXYCHLOROQUINE [Concomitant]
     Active Substance: HYDROXYCHLOROQUINE
     Dosage: EVERY 1 DAYS
     Route: 048
  9. COSENTYX [Concomitant]
     Active Substance: SECUKINUMAB
     Route: 058
  10. ORENCIA [Concomitant]
     Active Substance: ABATACEPT
     Route: 042

REACTIONS (15)
  - Hepatic enzyme abnormal [Not Recovered/Not Resolved]
  - Drug ineffective [Unknown]
  - Blood pressure decreased [Not Recovered/Not Resolved]
  - Herpes zoster [Not Recovered/Not Resolved]
  - Stress [Not Recovered/Not Resolved]
  - Weight increased [Not Recovered/Not Resolved]
  - Condition aggravated [Not Recovered/Not Resolved]
  - Enterovirus infection [Not Recovered/Not Resolved]
  - Fatigue [Not Recovered/Not Resolved]
  - Palmoplantar pustulosis [Not Recovered/Not Resolved]
  - Product use issue [Unknown]
  - Rhinovirus infection [Not Recovered/Not Resolved]
  - Hypertension [Not Recovered/Not Resolved]
  - Von Willebrand^s disease [Not Recovered/Not Resolved]
  - Pyrexia [Not Recovered/Not Resolved]
